FAERS Safety Report 8604256 (Version 2)
Quarter: 2012Q4

REPORT INFORMATION
  Report Type: 
  Country: US (occurrence: US)
  Receive Date: 20120608
  Receipt Date: 20120914
  Transmission Date: 20130627
  Serious: Yes (Death, Other)
  Sender: FDA-Public Use
  Company Number: US-PFIZER INC-2012134678

PATIENT
  Age: 50 Year
  Sex: Male

DRUGS (1)
  1. VFEND [Suspect]
     Indication: NON-HODGKIN^S LYMPHOMA
     Dosage: 200 mg, 2x/day
     Dates: start: 20120601

REACTIONS (1)
  - Septic shock [Fatal]
